FAERS Safety Report 12183901 (Version 1)
Quarter: 2016Q1

REPORT INFORMATION
  Report Type: Spontaneous
  Country: US (occurrence: US)
  Receive Date: 20160316
  Receipt Date: 20160316
  Transmission Date: 20160526
  Serious: Yes (Hospitalization)
  Sender: FDA-Public Use
  Company Number: US-ELI_LILLY_AND_COMPANY-US201603003045

PATIENT
  Age: 38 Year
  Sex: Female

DRUGS (5)
  1. AMBRISENTAN [Suspect]
     Active Substance: AMBRISENTAN
     Indication: PULMONARY HYPERTENSION
     Dosage: 10 MG, QD
     Route: 065
     Dates: start: 20150402, end: 20151216
  2. ADCIRCA [Suspect]
     Active Substance: TADALAFIL
     Indication: PRODUCT USED FOR UNKNOWN INDICATION
     Dosage: UNK, UNKNOWN
     Route: 065
  3. COREG [Concomitant]
     Active Substance: CARVEDILOL
     Dosage: UNK, UNKNOWN
     Route: 065
  4. AMBRISENTAN [Suspect]
     Active Substance: AMBRISENTAN
     Dosage: UNK
     Dates: start: 20160219
  5. LASIX [Concomitant]
     Active Substance: FUROSEMIDE
     Dosage: UNK, UNKNOWN
     Route: 065

REACTIONS (1)
  - Localised infection [Unknown]

NARRATIVE: CASE EVENT DATE: 20160216
